FAERS Safety Report 5153795-6 (Version None)
Quarter: 2006Q4

REPORT INFORMATION
  Report Type: 
  Country: None (occurrence: None)
  Receive Date: 20061120
  Receipt Date: 20040512
  Transmission Date: 20070319
  Serious: Yes (Hospitalization, Other)
  Sender: FDA-Public Use
  Company Number: PHHO2004JP06949

PATIENT
  Age: 65 Year
  Sex: Male
  Weight: 69 kg

DRUGS (22)
  1. WARFARIN SODIUM [Concomitant]
     Indication: ACUTE MYOCARDIAL INFARCTION
  2. LIPOVAS [Concomitant]
     Indication: HYPERCHOLESTEROLAEMIA
  3. HERBESSOR R [Concomitant]
     Indication: ACUTE MYOCARDIAL INFARCTION
  4. SIGMART [Concomitant]
     Indication: ACUTE MYOCARDIAL INFARCTION
  5. NITOROL [Concomitant]
     Indication: ACUTE MYOCARDIAL INFARCTION
  6. NORVASC [Concomitant]
     Indication: ACUTE MYOCARDIAL INFARCTION
  7. GASTER D [Concomitant]
     Indication: GASTRIC ULCER
  8. MUCOSTA [Concomitant]
     Indication: GASTRIC ULCER
  9. CALCIUM POLYSTYRENE SULFONATE [Concomitant]
     Indication: HYPERKALAEMIA
  10. LASIX [Concomitant]
     Indication: HYPERTENSION
  11. CARDENALIN [Concomitant]
     Indication: HYPERTENSION
  12. ADALAT [Concomitant]
     Indication: HYPERTENSION
  13. PENFILL R [Concomitant]
     Dosage: UNK, UNK
  14. DIOVAN [Suspect]
     Indication: HYPERTENSION
     Dosage: 20 MG, QD
     Route: 048
     Dates: start: 20030327, end: 20030410
  15. DIOVAN [Suspect]
     Dosage: 40 MG, QD
     Route: 048
     Dates: start: 20030411, end: 20031106
  16. DIOVAN [Suspect]
     Dosage: 80 MG, QD
     Route: 048
     Dates: start: 20031107, end: 20040511
  17. DIOVAN [Suspect]
     Dosage: 160 MG, QD
     Route: 048
     Dates: start: 20040512, end: 20040722
  18. DIOVAN [Suspect]
     Dosage: 80 MG, QD
     Route: 048
     Dates: start: 20040723, end: 20050512
  19. ALLOPURINOL [Concomitant]
     Indication: HYPERURICAEMIA
  20. CALCIUM CARBONATE [Concomitant]
     Indication: HYPOCALCAEMIA
  21. ESPO [Concomitant]
     Indication: ANAEMIA
  22. ALDOMET [Suspect]
     Dates: start: 20050408, end: 20050912

REACTIONS (5)
  - BLOOD CREATININE INCREASED [None]
  - DIABETIC NEPHROPATHY [None]
  - PATELLA FRACTURE [None]
  - RENAL IMPAIRMENT [None]
  - SURGERY [None]
